FAERS Safety Report 13727602 (Version 4)
Quarter: 2018Q1

REPORT INFORMATION
  Report Type: Report from Study
  Country: US (occurrence: US)
  Receive Date: 20170707
  Receipt Date: 20180111
  Transmission Date: 20180508
  Serious: Yes (Other)
  Sender: FDA-Public Use
  Company Number: US-AMGEN-USASL2017099192

PATIENT
  Age: 56 Year
  Sex: Male
  Weight: 100 kg

DRUGS (9)
  1. NPLATE [Suspect]
     Active Substance: ROMIPLOSTIM
     Dosage: 200 MUG, UNK
     Route: 065
  2. NPLATE [Suspect]
     Active Substance: ROMIPLOSTIM
     Dosage: 300 MUG, UNK
     Route: 065
     Dates: start: 20170622
  3. NPLATE [Suspect]
     Active Substance: ROMIPLOSTIM
     Dosage: 250 MUG, UNK
     Route: 065
     Dates: start: 20160512
  4. NPLATE [Suspect]
     Active Substance: ROMIPLOSTIM
     Dosage: 250 MUG, QWK
     Route: 065
     Dates: start: 201701
  5. NPLATE [Suspect]
     Active Substance: ROMIPLOSTIM
     Indication: IMMUNE THROMBOCYTOPENIC PURPURA
     Dosage: UNK
     Route: 065
     Dates: start: 2011
  6. NPLATE [Suspect]
     Active Substance: ROMIPLOSTIM
     Dosage: 200 MUG, UNK
     Route: 065
     Dates: start: 20161124
  7. NPLATE [Suspect]
     Active Substance: ROMIPLOSTIM
     Dosage: 400 MUG, UNK
     Route: 065
     Dates: start: 201710
  8. NPLATE [Suspect]
     Active Substance: ROMIPLOSTIM
     Dosage: 250 MUG, UNK
     Route: 065
     Dates: start: 20170608
  9. NPLATE [Suspect]
     Active Substance: ROMIPLOSTIM
     Dosage: 300 MUG, UNK
     Route: 065
     Dates: start: 20170615

REACTIONS (3)
  - Platelet count abnormal [Unknown]
  - Transfusion reaction [Unknown]
  - Platelet count decreased [Unknown]

NARRATIVE: CASE EVENT DATE: 201706
